FAERS Safety Report 5468129-7 (Version None)
Quarter: 2007Q3

REPORT INFORMATION
  Report Type: 
  Country: None (occurrence: None)
  Receive Date: 20070926
  Receipt Date: 20070914
  Transmission Date: 20080115
  Serious: Yes (Other)
  Sender: FDA-Public Use
  Company Number: US-JNJFOC-20070306725

PATIENT
  Sex: Female
  Weight: 79.38 kg

DRUGS (1)
  1. ORTHO EVRA [Suspect]
     Indication: MENOMETRORRHAGIA
     Route: 062

REACTIONS (2)
  - MENOMETRORRHAGIA [None]
  - OFF LABEL USE [None]
